FAERS Safety Report 11613515 (Version 3)
Quarter: 2016Q2

REPORT INFORMATION
  Report Type: Spontaneous
  Country: US (occurrence: US)
  Receive Date: 20151008
  Receipt Date: 20160427
  Transmission Date: 20160815
  Serious: No
  Sender: FDA-Public Use
  Company Number: US-ACTELION PHARMACEUTICALS US, INC.-A-US2015-125192

PATIENT
  Age: 83 Year
  Sex: Female

DRUGS (11)
  1. VALCHLOR [Suspect]
     Active Substance: MECHLORETHAMINE
     Indication: MYCOSIS FUNGOIDES
     Dosage: 0.016 %, UNK
     Route: 061
     Dates: start: 20140411
  2. CALCIUM [Concomitant]
     Active Substance: CALCIUM
  3. ALFALFA [Concomitant]
     Active Substance: ALFALFA
  4. MVI [Concomitant]
     Active Substance: VITAMINS
  5. LEVOXYL [Concomitant]
     Active Substance: LEVOTHYROXINE SODIUM
  6. LOSARTAN. [Concomitant]
     Active Substance: LOSARTAN
  7. LEVEMIR [Concomitant]
     Active Substance: INSULIN DETEMIR
  8. VITAMIN B12 [Concomitant]
     Active Substance: CYANOCOBALAMIN
  9. METFORMIN [Concomitant]
     Active Substance: METFORMIN HYDROCHLORIDE
     Indication: ESSENTIAL HYPERTENSION
  10. PRAVASTATIN [Concomitant]
     Active Substance: PRAVASTATIN\PRAVASTATIN SODIUM
  11. MAGNESIUM [Concomitant]
     Active Substance: MAGNESIUM

REACTIONS (6)
  - Therapy cessation [Unknown]
  - Arthralgia [Not Recovered/Not Resolved]
  - Compression fracture [Recovering/Resolving]
  - Back pain [Unknown]
  - Nerve compression [Not Recovered/Not Resolved]
  - Intervertebral disc protrusion [Not Recovered/Not Resolved]
